FAERS Safety Report 24085647 (Version 2)
Quarter: 2024Q3

REPORT INFORMATION
  Report Type: Report from Study
  Country: US (occurrence: US)
  Receive Date: 20240712
  Receipt Date: 20240805
  Transmission Date: 20241017
  Serious: Yes (Other)
  Sender: BAYER
  Company Number: US-BAYER-2024A099036

PATIENT
  Age: 75 Year
  Sex: Female

DRUGS (2)
  1. STIVARGA [Suspect]
     Active Substance: REGORAFENIB MONOHYDRATE
     Indication: Colon cancer
     Dosage: 160 MG, QD(160MG BY MOUTH DAILY FOR 3 WEEKS ON, 1 WEEK OFF )
     Route: 048
     Dates: start: 20240627
  2. STIVARGA [Suspect]
     Active Substance: REGORAFENIB MONOHYDRATE
     Indication: Rectal cancer

REACTIONS (6)
  - Gait disturbance [Unknown]
  - Adverse reaction [Unknown]
  - Blister [Unknown]
  - Dysstasia [Unknown]
  - Pain [Unknown]
  - Loss of personal independence in daily activities [None]
